FAERS Safety Report 7267790 (Version 4)
Quarter: 2013Q4

REPORT INFORMATION
  Report Type: Spontaneous
  Country: US (occurrence: US)
  Receive Date: 20100201
  Receipt Date: 20131213
  Transmission Date: 20140711
  Serious: Yes (Other)
  Sender: FDA-Public Use
  Company Number: US-GILEAD-2010-0026751

PATIENT
  Sex: Female

DRUGS (10)
  1. LETAIRIS [Suspect]
     Indication: PULMONARY ARTERIAL HYPERTENSION
  2. LASIX [Concomitant]
  3. MAVIK [Concomitant]
  4. CRESTOR [Concomitant]
  5. POTASSIUM [Concomitant]
  6. PRILOSEC [Concomitant]
  7. IRON [Concomitant]
  8. XANAX [Concomitant]
  9. CALCIUM + VITAMIN D [Concomitant]
  10. MIRALAX [Concomitant]

REACTIONS (1)
  - Liver function test abnormal [Recovered/Resolved]
